FAERS Safety Report 21750264 (Version 1)
Quarter: 2022Q4

REPORT INFORMATION
  Report Type: Spontaneous
  Country: US (occurrence: US)
  Receive Date: 20221219
  Receipt Date: 20221219
  Transmission Date: 20230113
  Serious: No
  Sender: FDA-Public Use
  Company Number: US-Aadi Bioscience, Inc-2022-AAD-00336

PATIENT

DRUGS (1)
  1. FYARRO [Suspect]
     Active Substance: SIROLIMUS
     Indication: Perivascular epithelioid cell tumour
     Dosage: OVER 30 MINUTES ON DAYS 1 AND 8 OF A 21-DAY CYCLE.
     Route: 042
     Dates: start: 20220531, end: 2022

REACTIONS (1)
  - Disease progression [Unknown]

NARRATIVE: CASE EVENT DATE: 20220101
